FAERS Safety Report 5884794-4 (Version None)
Quarter: 2008Q3

REPORT INFORMATION
  Report Type: 
  Country: None (occurrence: None)
  Receive Date: 20080915
  Receipt Date: 20080915
  Transmission Date: 20090109
  Serious: Yes (Death)
  Sender: FDA-Public Use
  Company Number: None

PATIENT
  Sex: Male
  Weight: 106 kg

DRUGS (1)
  1. BEVACIZUMAB GENENTECH [Suspect]
     Indication: PROSTATE CANCER METASTATIC
     Dosage: 15 MG/KG -1580 MG- ABOUT EVERY 21 DAY IV
     Route: 042
     Dates: start: 20050419, end: 20080624

REACTIONS (12)
  - ACUTE MYOCARDIAL INFARCTION [None]
  - ANIMAL SCRATCH [None]
  - AORTIC DISORDER [None]
  - BLOOD PRESSURE INADEQUATELY CONTROLLED [None]
  - DIALYSIS [None]
  - LACRIMATION INCREASED [None]
  - PROSTATIC SPECIFIC ANTIGEN INCREASED [None]
  - PROTEINURIA [None]
  - REFUSAL OF TREATMENT BY RELATIVE [None]
  - RENAL FAILURE ACUTE [None]
  - SYNCOPE [None]
  - TRANSIENT ISCHAEMIC ATTACK [None]
